FAERS Safety Report 12243716 (Version 26)
Quarter: 2020Q2

REPORT INFORMATION
  Report Type: Spontaneous
  Country: US (occurrence: US)
  Receive Date: 20160406
  Receipt Date: 20200429
  Transmission Date: 20200713
  Serious: Yes (Hospitalization, Other)
  Sender: FDA-Public Use
  Company Number: US-ACTELION PHARMACEUTICALS US, INC.-A-NJ2016-133995

PATIENT
  Age: 57 Year
  Sex: Female
  Weight: 65.76 kg

DRUGS (10)
  1. OPSUMIT [Suspect]
     Active Substance: MACITENTAN
     Dosage: 10 MG, QD
     Route: 048
  2. REMODULIN [Suspect]
     Active Substance: TREPROSTINIL
     Indication: PULMONARY ARTERIAL HYPERTENSION
     Dosage: UNK
     Route: 058
     Dates: end: 20180912
  3. REVATIO [Concomitant]
     Active Substance: SILDENAFIL CITRATE
  4. LASIX [Suspect]
     Active Substance: FUROSEMIDE
     Indication: PRODUCT USED FOR UNKNOWN INDICATION
     Route: 065
  5. OPSUMIT [Suspect]
     Active Substance: MACITENTAN
     Indication: PULMONARY ARTERIAL HYPERTENSION
     Dosage: 10 MG, QD
     Route: 048
     Dates: start: 20150416
  6. XARELTO [Suspect]
     Active Substance: RIVAROXABAN
     Indication: PRODUCT USED FOR UNKNOWN INDICATION
     Dosage: UNK
     Route: 048
  7. ELIQUIS [Concomitant]
     Active Substance: APIXABAN
  8. OPSUMIT [Suspect]
     Active Substance: MACITENTAN
     Dosage: UNK
     Route: 048
     Dates: start: 20150323
  9. REMODULIN [Suspect]
     Active Substance: TREPROSTINIL
     Dosage: UNK
     Route: 042
  10. REMODULIN [Suspect]
     Active Substance: TREPROSTINIL
     Dosage: 111 MG/KG, PER MIN
     Route: 042
     Dates: start: 20131103

REACTIONS (36)
  - Headache [Recovered/Resolved]
  - Device leakage [Unknown]
  - Infusion site irritation [Unknown]
  - Infusion site extravasation [Unknown]
  - Fatigue [Unknown]
  - Hospitalisation [Unknown]
  - Haematochezia [Unknown]
  - Dyspnoea [Unknown]
  - Blood iron decreased [Unknown]
  - Nocturia [Unknown]
  - Device breakage [Unknown]
  - Pulmonary arterial hypertension [Unknown]
  - Device dislocation [Unknown]
  - Panic reaction [Unknown]
  - Asthenia [Unknown]
  - Unevaluable event [Unknown]
  - Complication associated with device [Unknown]
  - Haemoptysis [Unknown]
  - Subcutaneous abscess [Unknown]
  - Infusion site swelling [Unknown]
  - General physical health deterioration [Unknown]
  - Faeces discoloured [Unknown]
  - Product administration error [Unknown]
  - Catheter management [Unknown]
  - Treatment noncompliance [Unknown]
  - Hypokinesia [Unknown]
  - Infusion site erythema [Unknown]
  - Nausea [Recovered/Resolved]
  - Vomiting [Recovered/Resolved]
  - Loss of personal independence in daily activities [Unknown]
  - Feeling abnormal [Unknown]
  - Infusion site pain [Recovered/Resolved]
  - Incorrect dose administered by device [Unknown]
  - Malaise [Unknown]
  - Right ventricular enlargement [Unknown]
  - Dizziness [Unknown]

NARRATIVE: CASE EVENT DATE: 20180807
